FAERS Safety Report 25071655 (Version 1)
Quarter: 2025Q1

REPORT INFORMATION
  Report Type: Spontaneous
  Country: US (occurrence: US)
  Receive Date: 20250313
  Receipt Date: 20250313
  Transmission Date: 20250409
  Serious: Yes (Hospitalization)
  Sender: CIPLA
  Company Number: US-CIPLA (EU) LIMITED-2025US02836

PATIENT

DRUGS (1)
  1. ALBUTEROL [Suspect]
     Active Substance: ALBUTEROL
     Indication: Product used for unknown indication
     Route: 065

REACTIONS (2)
  - Asthma [Unknown]
  - Product use issue [Unknown]

NARRATIVE: CASE EVENT DATE: 20250201
